FAERS Safety Report 6794698-0 (Version None)
Quarter: 2010Q2

REPORT INFORMATION
  Report Type: 
  Country: None (occurrence: None)
  Receive Date: 20100625
  Receipt Date: 20100412
  Transmission Date: 20101027
  Serious: Yes (Hospitalization, Other)
  Sender: FDA-Public Use
  Company Number: US-ASTRAZENECA-2007UW04067

PATIENT
  Age: 39 Year
  Sex: Female
  Weight: 82.6 kg

DRUGS (35)
  1. SEROQUEL [Suspect]
     Indication: DEPRESSION
     Dosage: 25-300 MG
     Route: 048
     Dates: start: 20020627, end: 20050613
  2. SEROQUEL [Suspect]
     Indication: SCHIZOAFFECTIVE DISORDER
     Dosage: 25-300 MG
     Route: 048
     Dates: start: 20020627, end: 20050613
  3. SEROQUEL [Suspect]
     Dosage: 100MG TO 300MG
     Route: 048
     Dates: start: 20020601, end: 20050601
  4. SEROQUEL [Suspect]
     Dosage: 100MG TO 300MG
     Route: 048
     Dates: start: 20020601, end: 20050601
  5. GEODON [Concomitant]
     Dates: start: 20050701, end: 20051001
  6. RISPERDAL [Concomitant]
     Dates: end: 19990101
  7. ZYPREXA [Concomitant]
     Dosage: 2.5MG TO 5MG
     Dates: end: 19990101
  8. LIPITOR [Concomitant]
  9. TOPROL-XL [Concomitant]
  10. NITROGLYCERIN [Concomitant]
  11. GLUCOPHAGE [Concomitant]
  12. NEXIUM [Concomitant]
  13. PREVACID [Concomitant]
  14. REGLAN [Concomitant]
  15. PROTONIX [Concomitant]
  16. CARAFATE [Concomitant]
  17. DESYREL [Concomitant]
  18. LUNESTA [Concomitant]
  19. ISOSORBIDE MN [Concomitant]
  20. KLONOPIN [Concomitant]
  21. ELAVIL [Concomitant]
  22. ZELNORM [Concomitant]
  23. MECLIZINE [Concomitant]
  24. ULTRAM [Concomitant]
  25. REMERON [Concomitant]
     Dosage: 30 TO 45 MG
  26. DICYCLOMINE [Concomitant]
  27. AMBIEN [Concomitant]
  28. WELLBUTRIN XL [Concomitant]
  29. TEMAZEPAM [Concomitant]
  30. ASPIRIN [Concomitant]
  31. ZIPRASIDONE HCL [Concomitant]
  32. LEVOTHYROXINE [Concomitant]
     Route: 048
  33. LORAZEPAM [Concomitant]
  34. SIMVASTATIN [Concomitant]
  35. PROZAC [Concomitant]

REACTIONS (8)
  - ACUTE CORONARY SYNDROME [None]
  - ANGINA PECTORIS [None]
  - ANGINA UNSTABLE [None]
  - CARDIAC DISORDER [None]
  - CHEST PAIN [None]
  - DIABETES MELLITUS [None]
  - DIABETIC NEUROPATHY [None]
  - TYPE 2 DIABETES MELLITUS [None]
